FAERS Safety Report 20041924 (Version 1)
Quarter: 2021Q4

REPORT INFORMATION
  Report Type: Spontaneous
  Country: US (occurrence: None)
  Receive Date: 20211108
  Receipt Date: 20211108
  Transmission Date: 20220303
  Serious: Yes (Hospitalization)
  Sender: FDA-Public Use
  Company Number: US-ROCHE-2950633

PATIENT
  Age: 70 Year
  Sex: Female

DRUGS (1)
  1. ESBRIET [Suspect]
     Active Substance: PIRFENIDONE
     Indication: Pulmonary fibrosis
     Dosage: ONGOING-YES
     Route: 048
     Dates: start: 202108

REACTIONS (3)
  - Fall [Unknown]
  - Upper limb fracture [Unknown]
  - Humerus fracture [Unknown]

NARRATIVE: CASE EVENT DATE: 20211009
